FAERS Safety Report 14261481 (Version 1)
Quarter: 2017Q4

REPORT INFORMATION
  Report Type: Spontaneous
  Country: US (occurrence: US)
  Receive Date: 20171208
  Receipt Date: 20171208
  Transmission Date: 20180321
  Serious: Yes (Death)
  Sender: FDA-Public Use
  Company Number: US-ROCHE-2034169

PATIENT
  Age: 66 Year
  Sex: Male

DRUGS (1)
  1. ESBRIET [Suspect]
     Active Substance: PIRFENIDONE
     Indication: IDIOPATHIC PULMONARY FIBROSIS
     Dosage: STRENGTH: 267 MG ; ONGOING :UNKNOWN
     Route: 048
     Dates: start: 20160721

REACTIONS (1)
  - Pulmonary arterial hypertension [Fatal]

NARRATIVE: CASE EVENT DATE: 20171127
